FAERS Safety Report 25674556 (Version 1)
Quarter: 2025Q3

REPORT INFORMATION
  Report Type: Spontaneous
  Country: EU (occurrence: EU)
  Receive Date: 20250813
  Receipt Date: 20250813
  Transmission Date: 20251020
  Serious: Yes (Other)
  Sender: HIKMA
  Company Number: None

PATIENT
  Sex: Male

DRUGS (2)
  1. CEFUROXIME SODIUM [Suspect]
     Active Substance: CEFUROXIME SODIUM
     Indication: Cardiac operation
     Route: 042
     Dates: start: 20250722
  2. CEFUROXIME SODIUM [Suspect]
     Active Substance: CEFUROXIME SODIUM
     Indication: Coronary artery bypass

REACTIONS (3)
  - Blood pressure decreased [Unknown]
  - Resuscitation [Unknown]
  - Peau d^orange [Unknown]

NARRATIVE: CASE EVENT DATE: 20250722
